FAERS Safety Report 8622845-4 (Version None)
Quarter: 2012Q3

REPORT INFORMATION
  Report Type: 
  Country: None (occurrence: None)
  Receive Date: 20120827
  Receipt Date: 20120821
  Transmission Date: 20120928
  Serious: Yes (Hospitalization, Other)
  Sender: FDA-Public Use
  Company Number: PHHY2012SE072503

PATIENT
  Sex: Male

DRUGS (1)
  1. IMATINIB MESYLATE [Suspect]
     Dosage: UNK UKN, UNK
     Route: 065

REACTIONS (7)
  - PYREXIA [None]
  - DRUG INEFFECTIVE [None]
  - DIABETES MELLITUS [None]
  - MYALGIA [None]
  - CHILLS [None]
  - HYPERTENSION [None]
  - BONE MARROW DISORDER [None]
